FAERS Safety Report 4287557-9 (Version None)
Quarter: 2004Q1

REPORT INFORMATION
  Report Type: 
  Country: None (occurrence: None)
  Receive Date: 20040209
  Receipt Date: 20030725
  Transmission Date: 20041129
  Serious: Yes (Other)
  Sender: FDA-Public Use
  Company Number: US-GLAXOSMITHKLINE-A0418235A

PATIENT
  Age: 35 Year
  Sex: Female

DRUGS (1)
  1. PAXIL CR [Suspect]
     Indication: ANXIETY
     Dosage: 25MG UNKNOWN
     Route: 048
     Dates: start: 20030101, end: 20030701

REACTIONS (2)
  - DRUG WITHDRAWAL SYNDROME [None]
  - NAUSEA [None]
